FAERS Safety Report 17150858 (Version 1)
Quarter: 2019Q4

REPORT INFORMATION
  Report Type: Spontaneous
  Country: US (occurrence: US)
  Receive Date: 20191213
  Receipt Date: 20191213
  Transmission Date: 20200122
  Serious: Yes (Death)
  Sender: FDA-Public Use
  Company Number: US-SCIEGEN PHARMACEUTICALS INC-2019SCILIT00376

PATIENT
  Age: 51 Year
  Sex: Female
  Weight: 295 kg

DRUGS (8)
  1. OXYMORPHONE [Concomitant]
     Active Substance: OXYMORPHONE
  2. OXYCODON-ACETAMINOPHEN [Suspect]
     Active Substance: ACETAMINOPHEN\OXYCODONE HYDROCHLORIDE
  3. TRAZODONE [Concomitant]
     Active Substance: TRAZODONE HYDROCHLORIDE
  4. LIQUID OXYCODONE [Suspect]
     Active Substance: OXYCODONE
  5. PAROXETINE. [Concomitant]
     Active Substance: PAROXETINE
  6. M-CPP (META-CHLOROPHENYLPIPERAZINE) [Concomitant]
  7. GABAPENTIN TABLETS [Suspect]
     Active Substance: GABAPENTIN
  8. ZOLPIDEM [Concomitant]
     Active Substance: ZOLPIDEM TARTRATE

REACTIONS (3)
  - Toxicity to various agents [Fatal]
  - Accidental poisoning [Fatal]
  - Disorientation [Unknown]
